FAERS Safety Report 20910072 (Version 1)
Quarter: 2022Q2

REPORT INFORMATION
  Report Type: Spontaneous
  Country: US (occurrence: US)
  Receive Date: 20220603
  Receipt Date: 20220603
  Transmission Date: 20220721
  Serious: No
  Sender: FDA-Public Use
  Company Number: US-CELGENE-USA-20220207307

PATIENT
  Age: 80 Year
  Sex: Male

DRUGS (1)
  1. REVLIMID [Suspect]
     Active Substance: LENALIDOMIDE
     Indication: Plasma cell myeloma
     Dosage: DOSE:- 25 MILLIGRAM
     Route: 048
     Dates: start: 202201

REACTIONS (2)
  - Night sweats [Recovered/Resolved]
  - Constipation [Unknown]
